FAERS Safety Report 25005927 (Version 1)
Quarter: 2025Q1

REPORT INFORMATION
  Report Type: Other
  Country: ES (occurrence: ES)
  Receive Date: 20250224
  Receipt Date: 20250224
  Transmission Date: 20250409
  Serious: Yes (Life-Threatening, Hospitalization)
  Sender: Atnahs Healthcare
  Company Number: None

PATIENT
  Age: 62 Year
  Sex: Female

DRUGS (1)
  1. DIAZEPAM [Suspect]
     Active Substance: DIAZEPAM
     Indication: Suicide attempt
     Route: 048
     Dates: start: 20240418

REACTIONS (1)
  - Sedation complication [Recovering/Resolving]

NARRATIVE: CASE EVENT DATE: 20240418
